FAERS Safety Report 26208216 (Version 1)
Quarter: 2025Q4

REPORT INFORMATION
  Report Type: Spontaneous
  Country: CN (occurrence: CN)
  Receive Date: 20251229
  Receipt Date: 20251229
  Transmission Date: 20260119
  Serious: Yes (Hospitalization)
  Sender: BAYER HEALTHCARE PHARMACEUTICALS INC.
  Company Number: CN-BAYER-2025A168832

PATIENT
  Age: 61 Year
  Sex: Female

DRUGS (2)
  1. ULTRAVIST [Suspect]
     Active Substance: IOPROMIDE
     Indication: Computerised tomogram neck
     Dosage: 70 ML, ONCE
     Route: 041
     Dates: start: 20250126, end: 20250126
  2. ULTRAVIST [Suspect]
     Active Substance: IOPROMIDE
     Indication: Goitre

REACTIONS (5)
  - Respiratory alkalosis [Recovering/Resolving]
  - Dyspnoea [Recovering/Resolving]
  - Chills [Recovering/Resolving]
  - Blood pressure systolic increased [None]
  - Palpitations [Recovering/Resolving]

NARRATIVE: CASE EVENT DATE: 20250126
